FAERS Safety Report 5479521-9 (Version None)
Quarter: 2007Q3

REPORT INFORMATION
  Report Type: 
  Country: None (occurrence: None)
  Receive Date: 20070911
  Receipt Date: 20070123
  Transmission Date: 20080115
  Serious: Yes (Other)
  Sender: FDA-Public Use
  Company Number: 2007-0011107

PATIENT
  Sex: Male

DRUGS (10)
  1. ATRIPLA [Suspect]
     Indication: HIV INFECTION
  2. ZANTAC 150 [Concomitant]
  3. LITHIUM CARBONATE [Concomitant]
  4. DEPAKOTE [Concomitant]
  5. NEURONTIN [Concomitant]
  6. CELEXA [Concomitant]
  7. LAMICTAL [Concomitant]
  8. MARINOL [Concomitant]
  9. FENTANYL [Concomitant]
  10. PERCOCET [Concomitant]

REACTIONS (2)
  - MOOD SWINGS [None]
  - SELF-INJURIOUS IDEATION [None]
